FAERS Safety Report 5873584-4 (Version None)
Quarter: 2008Q3

REPORT INFORMATION
  Report Type: 
  Country: None (occurrence: None)
  Receive Date: 20080908
  Receipt Date: 20080826
  Transmission Date: 20090109
  Serious: Yes (Hospitalization)
  Sender: FDA-Public Use
  Company Number: US-BAYER-US-2006-026721

PATIENT
  Age: 68 Year
  Sex: Male
  Weight: 69 kg

DRUGS (64)
  1. CAMPATH [Suspect]
     Indication: CHRONIC LYMPHOCYTIC LEUKAEMIA
     Route: 058
     Dates: start: 20060710, end: 20060714
  2. CAMPATH [Suspect]
     Route: 058
     Dates: start: 20060821, end: 20060825
  3. FLUDARA [Suspect]
     Indication: CHRONIC LYMPHOCYTIC LEUKAEMIA
     Route: 042
     Dates: start: 20060710, end: 20060714
  4. FLUDARA [Suspect]
     Route: 042
     Dates: start: 20060821, end: 20060825
  5. DIOVAN HCT [Concomitant]
     Indication: HYPERTENSION
     Route: 048
     Dates: start: 19950501
  6. AVANDIA [Concomitant]
     Indication: DIABETES MELLITUS
     Route: 048
  7. FAMVIR [Concomitant]
     Route: 048
  8. BACTRIM DS [Concomitant]
     Route: 048
  9. NOVOLOG [Concomitant]
     Indication: DIABETES MELLITUS
     Route: 058
     Dates: start: 20060601
  10. ZOCOR [Concomitant]
     Indication: HYPERLIPIDAEMIA
     Route: 048
     Dates: start: 20060601
  11. VANCOMYCIN HYDROCHLORIDE [Concomitant]
     Indication: INFECTION PROPHYLAXIS
     Route: 042
     Dates: start: 20060802, end: 20060802
  12. GENTAMICIN [Concomitant]
     Indication: INFECTION PROPHYLAXIS
     Route: 042
     Dates: start: 20060802, end: 20060802
  13. ROCEPHIN [Concomitant]
     Indication: INFECTION PROPHYLAXIS
     Route: 042
     Dates: start: 20060912, end: 20060913
  14. ZOSYN [Concomitant]
     Indication: INFECTION PROPHYLAXIS
     Route: 042
     Dates: start: 20060802, end: 20060805
  15. HEPARIN [Concomitant]
     Indication: PROPHYLAXIS
     Route: 042
     Dates: start: 20060910
  16. HEPARIN [Concomitant]
     Route: 058
     Dates: start: 20060920, end: 20060927
  17. ANZEMET [Concomitant]
     Indication: PROPHYLAXIS OF NAUSEA AND VOMITING
     Route: 042
     Dates: start: 20060710, end: 20060713
  18. BENADRYL [Concomitant]
     Indication: PROPHYLAXIS
     Route: 042
     Dates: start: 20060710, end: 20060714
  19. TYLENOL (CAPLET) [Concomitant]
     Indication: PROPHYLAXIS
     Route: 048
     Dates: start: 20060710
  20. TYLENOL (CAPLET) [Concomitant]
     Route: 048
     Dates: start: 20060710, end: 20060714
  21. ALOXI [Concomitant]
     Indication: PROPHYLAXIS OF NAUSEA AND VOMITING
     Route: 042
     Dates: start: 20060714, end: 20060714
  22. SOLU-MEDROL [Concomitant]
     Indication: PROPHYLAXIS
     Route: 042
     Dates: start: 20060711, end: 20060711
  23. SOLU-MEDROL [Concomitant]
     Route: 042
     Dates: start: 20060712, end: 20060714
  24. AMOXICILLIN [Concomitant]
     Indication: INFECTION PROPHYLAXIS
     Route: 048
     Dates: start: 20060807, end: 20060811
  25. VALCYTE [Concomitant]
     Indication: CYTOMEGALOVIRUS TEST POSITIVE
     Route: 048
     Dates: start: 20060810, end: 20060823
  26. ARANESP [Concomitant]
     Indication: ANAEMIA
     Route: 058
     Dates: start: 20060725, end: 20060725
  27. ARANESP [Concomitant]
     Route: 058
     Dates: start: 20060807, end: 20060807
  28. ARANESP [Concomitant]
     Dates: start: 20060905, end: 20060905
  29. ARANESP [Concomitant]
     Route: 058
     Dates: start: 20060825, end: 20060825
  30. ARANESP [Concomitant]
     Route: 058
     Dates: start: 20060821, end: 20060821
  31. NEUPOGEN [Concomitant]
     Indication: LEUKOPENIA
     Route: 058
     Dates: start: 20060804, end: 20060804
  32. PROCRIT [Concomitant]
     Indication: ANAEMIA
     Route: 058
     Dates: start: 20060804, end: 20060804
  33. KEPPRA [Concomitant]
     Indication: CONVULSION PROPHYLAXIS
     Route: 048
     Dates: start: 20060731, end: 20060805
  34. PROTONIX [Concomitant]
     Indication: PROPHYLAXIS
     Route: 042
     Dates: start: 20060730, end: 20060731
  35. PROTONIX [Concomitant]
     Route: 048
     Dates: start: 20060912, end: 20060927
  36. PROTONIX [Concomitant]
     Route: 048
     Dates: start: 20060801, end: 20060804
  37. HYDRODIURIL [Concomitant]
     Indication: HYPERTENSION
     Route: 048
     Dates: start: 20060801, end: 20060805
  38. NAPROXEN [Concomitant]
     Indication: PAIN
     Route: 048
     Dates: start: 20060802, end: 20060805
  39. ATIVAN [Concomitant]
     Indication: ANXIETY
     Route: 042
     Dates: start: 20060731, end: 20060731
  40. DULCOLAX [Concomitant]
     Indication: COLONOSCOPY
     Route: 048
     Dates: start: 20060730, end: 20060730
  41. GOLYTELY [Concomitant]
     Indication: COLONOSCOPY
     Route: 048
     Dates: start: 20060730, end: 20060730
  42. POTASSIUM CHLORIDE [Concomitant]
     Indication: HYPOKALAEMIA
     Route: 048
     Dates: start: 20060803, end: 20060803
  43. FOLIC ACID [Concomitant]
     Indication: SUPPLEMENTATION THERAPY
     Route: 048
     Dates: start: 20060925
  44. FLUCONAZOLE [Concomitant]
     Indication: INFECTION PROPHYLAXIS
     Route: 042
     Dates: start: 20060913, end: 20060914
  45. LACTULOSE [Concomitant]
     Indication: CONSTIPATION
     Route: 048
     Dates: start: 20060914, end: 20060914
  46. CEFEPIME [Concomitant]
     Indication: INFECTION PROPHYLAXIS
     Route: 042
     Dates: start: 20060913, end: 20060918
  47. DAPTOMYCIN [Concomitant]
     Indication: INFECTION PROPHYLAXIS
     Route: 042
     Dates: start: 20060915, end: 20060918
  48. LUMIGAN [Concomitant]
     Indication: GLAUCOMA
     Route: 047
     Dates: start: 20060917
  49. ALPHAGAN [Concomitant]
     Indication: GLAUCOMA
     Route: 047
     Dates: start: 20060917
  50. COSOPT [Concomitant]
     Indication: GLAUCOMA
     Route: 047
     Dates: start: 20060917
  51. REGLAN [Concomitant]
     Route: 048
     Dates: start: 20060925, end: 20060927
  52. CLONIDINE [Concomitant]
     Indication: HYPERTENSION
     Route: 048
     Dates: start: 20060926, end: 20060927
  53. CLONIDINE [Concomitant]
     Route: 048
     Dates: start: 20060925, end: 20060926
  54. COLACE [Concomitant]
     Indication: CONSTIPATION
     Route: 048
     Dates: start: 20060924, end: 20060926
  55. BENADRYL [Concomitant]
     Indication: RASH
     Route: 048
     Dates: start: 20060718, end: 20060725
  56. TYLENOL (CAPLET) [Concomitant]
     Route: 048
     Dates: start: 20060821, end: 20060825
  57. ANZEMET [Concomitant]
     Route: 042
     Dates: start: 20060821, end: 20060824
  58. ALOXI [Concomitant]
     Route: 042
     Dates: start: 20060825, end: 20060825
  59. BENADRYL [Concomitant]
     Route: 042
     Dates: start: 20060821, end: 20060825
  60. SOLU-MEDROL [Concomitant]
     Route: 042
     Dates: start: 20060823, end: 20060825
  61. SOLU-MEDROL [Concomitant]
     Route: 042
     Dates: start: 20060822, end: 20060822
  62. ZOSYN [Concomitant]
     Route: 042
     Dates: start: 20060911, end: 20060911
  63. VANCOMYCIN HYDROCHLORIDE [Concomitant]
     Route: 042
     Dates: start: 20060914, end: 20060914
  64. VANCOMYCIN HYDROCHLORIDE [Concomitant]
     Route: 042
     Dates: start: 20060913, end: 20060913

REACTIONS (5)
  - MENTAL STATUS CHANGES [None]
  - RENAL FAILURE ACUTE [None]
  - RENAL TUBULAR NECROSIS [None]
  - SEPSIS SYNDROME [None]
  - SYNCOPE [None]
